FAERS Safety Report 15113902 (Version 1)
Quarter: 2018Q3

REPORT INFORMATION
  Report Type: Spontaneous
  Country: CA (occurrence: CA)
  Receive Date: 20180706
  Receipt Date: 20180706
  Transmission Date: 20181010
  Serious: Yes (Other)
  Sender: FDA-Public Use
  Company Number: CA-REGENERON PHARMACEUTICALS, INC.-2018-28300

PATIENT

DRUGS (1)
  1. EYLEA [Suspect]
     Active Substance: AFLIBERCEPT
     Indication: PRODUCT USED FOR UNKNOWN INDICATION
     Dosage: UNKNOWN NUMBERS OF EYLEA INJECTION
     Dates: start: 201806, end: 201806

REACTIONS (4)
  - Vitreous floaters [Unknown]
  - Eye irritation [Unknown]
  - Toxic anterior segment syndrome [Recovering/Resolving]
  - Ocular hyperaemia [Unknown]

NARRATIVE: CASE EVENT DATE: 201806
